FAERS Safety Report 7799525 (Version 2)
Quarter: 2013Q4

REPORT INFORMATION
  Report Type: Spontaneous
  Country: US (occurrence: US)
  Receive Date: 20110204
  Receipt Date: 20131127
  Transmission Date: 20140711
  Serious: Yes (Other)
  Sender: FDA-Public Use
  Company Number: US-ROCHE-709282

PATIENT
  Age: 14 Year
  Sex: Male
  Weight: 61.2 kg

DRUGS (1)
  1. ACCUTANE [Suspect]
     Indication: ACNE
     Route: 065
     Dates: start: 20060210, end: 200607

REACTIONS (9)
  - Crohn^s disease [Unknown]
  - Colitis ulcerative [Unknown]
  - Inflammatory bowel disease [Unknown]
  - Stress [Unknown]
  - Blood triglycerides increased [Unknown]
  - Chapped lips [Unknown]
  - Dry mouth [Unknown]
  - Musculoskeletal discomfort [Unknown]
  - Low density lipoprotein decreased [Unknown]
